FAERS Safety Report 8799038 (Version 1)
Quarter: 2012Q4

REPORT INFORMATION
  Report Type: 
  Country: NL (occurrence: NL)
  Receive Date: 20120920
  Receipt Date: 20120920
  Transmission Date: 20130627
  Serious: Yes (Other)
  Sender: FDA-Public Use
  Company Number: PHHY2012NL080991

PATIENT
  Age: 71 Year
  Sex: Female

DRUGS (7)
  1. NITROFURANTOIN [Suspect]
     Indication: URINARY TRACT INFECTION
     Dosage: 50 mg, BID
  2. SIMVASTATIN [Suspect]
     Indication: CEREBROVASCULAR ACCIDENT
     Dosage: 40 mg, UNK
  3. DIPYRIDAMOLE [Suspect]
     Indication: CEREBROVASCULAR ACCIDENT
     Dosage: 150 mg, UNK
  4. CALCIUM CARBONATE W/CHOLECALCIFEROL/SODIUM [Suspect]
     Indication: OSTEOPOROSIS
  5. FLUTICASONE W/SALMETEROL [Concomitant]
  6. ACETYLSALICYLIC ACID [Concomitant]
  7. IPRATROPIUM [Concomitant]

REACTIONS (2)
  - Vasculitis [Recovering/Resolving]
  - Dyspnoea [Recovering/Resolving]
